FAERS Safety Report 9267619 (Version 2)
Quarter: 2014Q1

REPORT INFORMATION
  Report Type: Report from Study
  Country: US (occurrence: US)
  Receive Date: 20130502
  Receipt Date: 20140307
  Transmission Date: 20141002
  Serious: Yes (Hospitalization, Other)
  Sender: FDA-Public Use
  Company Number: US-ALEXION-A201200664

PATIENT
  Age: 1 Year
  Sex: Male

DRUGS (9)
  1. SOLIRIS 300MG [Suspect]
     Indication: HAEMOLYTIC URAEMIC SYNDROME
     Dosage: 300 MG Q3WEEKS
     Route: 042
     Dates: start: 200907
  2. SOLIRIS 300MG [Suspect]
     Dosage: 300 MG, Q2W
     Route: 042
  3. HEMOPHILUS VACCINE [Concomitant]
     Indication: IMMUNISATION
     Dosage: UNK
     Dates: start: 20090829, end: 20090829
  4. HEMOPHILUS VACCINE [Concomitant]
     Dosage: UNK
     Dates: start: 20100528, end: 20100528
  5. PNEUMOCOCCAL VACCINE [Concomitant]
     Indication: IMMUNISATION
     Dosage: UNK
     Dates: start: 20090819, end: 20090819
  6. PNEUMOCOCCAL VACCINE [Concomitant]
     Dosage: UNK
     Dates: start: 20100222, end: 20100222
  7. AMOXICILLIN [Concomitant]
     Indication: PROPHYLAXIS
     Dosage: UNK
  8. BICITRA [Concomitant]
     Indication: RENAL TUBULAR ACIDOSIS
     Dosage: UNK
  9. MULTIVITAMIN [Concomitant]
     Dosage: UNK

REACTIONS (1)
  - Viral infection [Recovered/Resolved]
